FAERS Safety Report 11915694 (Version 2)
Quarter: 2016Q1

REPORT INFORMATION
  Report Type: Spontaneous
  Country: IN (occurrence: IN)
  Receive Date: 20160114
  Receipt Date: 20160127
  Transmission Date: 20160526
  Serious: Yes (Hospitalization, Other)
  Sender: FDA-Public Use
  Company Number: IN-LUPIN PHARMACEUTICALS INC.-2016-00091

PATIENT
  Sex: Female

DRUGS (2)
  1. CEFANTRAL 1G [Suspect]
     Active Substance: CEFOTAXIME SODIUM
     Indication: PROPHYLAXIS
     Dosage: TEST DOSE
     Route: 064
     Dates: start: 20151230, end: 20151230
  2. CEFANTRAL 1G [Suspect]
     Active Substance: CEFOTAXIME SODIUM
     Route: 064
     Dates: start: 20151230, end: 20151230

REACTIONS (2)
  - Neonatal respiratory distress syndrome [Unknown]
  - Foetal exposure during pregnancy [Unknown]
